FAERS Safety Report 18771044 (Version 1)
Quarter: 2021Q1

REPORT INFORMATION
  Report Type: Spontaneous
  Country: US (occurrence: US)
  Receive Date: 20210122
  Receipt Date: 20210122
  Transmission Date: 20210419
  Serious: No
  Sender: FDA-Public Use
  Company Number: US-009507513-2101USA001290

PATIENT
  Sex: Female

DRUGS (1)
  1. BELSOMRA [Suspect]
     Active Substance: SUVOREXANT
     Dosage: 1/ DOSE
     Route: 048
     Dates: start: 20201214

REACTIONS (6)
  - No adverse event [Unknown]
  - Product blister packaging issue [Unknown]
  - Product packaging difficult to open [Unknown]
  - Product container issue [Unknown]
  - Product packaging quantity issue [Unknown]
  - Poor quality product administered [Unknown]

NARRATIVE: CASE EVENT DATE: 20201214
